FAERS Safety Report 13516000 (Version 1)
Quarter: 2017Q2

REPORT INFORMATION
  Report Type: Spontaneous
  Country: CA (occurrence: CA)
  Receive Date: 20170505
  Receipt Date: 20170505
  Transmission Date: 20170830
  Serious: Yes (Other)
  Sender: FDA-Public Use
  Company Number: CA-TEVA-765191ACC

PATIENT
  Age: 73 Year
  Sex: Male
  Weight: 90.8 kg

DRUGS (4)
  1. CRESTOR [Concomitant]
     Active Substance: ROSUVASTATIN CALCIUM
  2. WARFARIN [Suspect]
     Active Substance: WARFARIN
     Indication: THROMBOSIS PROPHYLAXIS
     Dosage: 7.5 MILLIGRAM DAILY;
     Route: 048
  3. METFORMIN [Concomitant]
     Active Substance: METFORMIN HYDROCHLORIDE
  4. ALTACE [Concomitant]
     Active Substance: RAMIPRIL

REACTIONS (2)
  - Drug ineffective [Unknown]
  - International normalised ratio fluctuation [Unknown]
